FAERS Safety Report 4506888-8 (Version None)
Quarter: 2004Q4

REPORT INFORMATION
  Report Type: 
  Country: None (occurrence: None)
  Receive Date: 20041117
  Receipt Date: 20041109
  Transmission Date: 20050328
  Serious: Yes (Death, Hospitalization)
  Sender: FDA-Public Use
  Company Number: 2004090174

PATIENT
  Age: 68 Year
  Sex: Female

DRUGS (7)
  1. IRINOTECAN HCL [Suspect]
     Indication: COLORECTAL CANCER
     Dosage: (420 MG, CYCLIC INTERVAL: EVERY 3 WEEKS, INTRAVENOUS
     Route: 042
     Dates: end: 20040130
  2. PAROXETINE HCL [Concomitant]
  3. AMARYL [Concomitant]
  4. ZOPLICONE (ZOPICLONE) [Concomitant]
  5. METOPROLOL TARTRATE [Concomitant]
  6. ATORVASTATIN (ATORVASTATIN) [Concomitant]
  7. ESOMEPRAZOLE (ESOMEPRAZOLE) [Concomitant]

REACTIONS (9)
  - ABDOMINAL PAIN [None]
  - BONE MARROW DEPRESSION [None]
  - HAEMORRHAGE [None]
  - MENTAL DISORDER [None]
  - NAUSEA [None]
  - NEUTROPENIC SEPSIS [None]
  - PLATELET COUNT DECREASED [None]
  - VOMITING [None]
  - WHITE BLOOD CELL COUNT DECREASED [None]
